FAERS Safety Report 18651890 (Version 8)
Quarter: 2021Q3

REPORT INFORMATION
  Report Type: Report from Study
  Country: FR (occurrence: FR)
  Receive Date: 20201222
  Receipt Date: 20210728
  Transmission Date: 20211014
  Serious: Yes (Death, Life-Threatening)
  Sender: FDA-Public Use
  Company Number: FR-PFIZER INC-2020502651

PATIENT
  Weight: 47 kg

DRUGS (11)
  1. CEFAZOLINE [CEFAZOLIN] [Concomitant]
     Active Substance: CEFAZOLIN
     Indication: SEPSIS
     Dosage: 2 G, 3X/DAY
     Dates: start: 20201204, end: 20201207
  2. MORPHINE [Concomitant]
     Active Substance: MORPHINE
     Indication: ANAESTHESIA
     Dosage: 5 MG, Q,H
     Dates: start: 20201128, end: 20201206
  3. GEMTUZUMAB OZOGAMICIN [Suspect]
     Active Substance: GEMTUZUMAB OZOGAMICIN
     Indication: ACUTE MYELOID LEUKAEMIA
     Dosage: 4.4 MG, 1X/DAY
     Route: 042
     Dates: start: 20201116, end: 20201116
  4. MORPHINE [Concomitant]
     Active Substance: MORPHINE
     Indication: PAIN
  5. MIDAZOLAM. [Concomitant]
     Active Substance: MIDAZOLAM
     Indication: SEIZURE
  6. MITOXANTRONE HYDROCHLORIDE. [Suspect]
     Active Substance: MITOXANTRONE HYDROCHLORIDE
     Indication: ACUTE MYELOID LEUKAEMIA
     Dosage: 12 MG/M2, 1X/DAY
     Route: 042
     Dates: start: 20201113, end: 20201116
  7. MORPHINE [Concomitant]
     Active Substance: MORPHINE
     Indication: SEIZURE
     Dosage: 2.5 MG (Q,H)
     Dates: start: 20201128, end: 20201206
  8. MIDAZOLAM. [Concomitant]
     Active Substance: MIDAZOLAM
     Indication: ANAESTHESIA
     Dosage: 5 MG, Q.H
     Dates: start: 20201205, end: 20201206
  9. KETAMINE [Concomitant]
     Active Substance: KETAMINE
     Indication: ANAESTHESIA
     Dosage: 1 MG (Q.H)
     Dates: start: 20201203, end: 20201204
  10. KETAMINE [Concomitant]
     Active Substance: KETAMINE
     Indication: SEIZURE
     Dosage: 20 MG, 2X/DAY
     Dates: start: 20201205, end: 20201206
  11. HYDROXYUREA. [Concomitant]
     Active Substance: HYDROXYUREA
     Dosage: UNKNOWN

REACTIONS (8)
  - Hyperammonaemia [Fatal]
  - Perineal cellulitis [Not Recovered/Not Resolved]
  - Brain death [Fatal]
  - Sepsis [Fatal]
  - Altered state of consciousness [Not Recovered/Not Resolved]
  - Brain oedema [Fatal]
  - Seizure [Fatal]
  - Gastrointestinal haemorrhage [Not Recovered/Not Resolved]

NARRATIVE: CASE EVENT DATE: 20201204
